FAERS Safety Report 8181472-6 (Version None)
Quarter: 2012Q1

REPORT INFORMATION
  Report Type: 
  Country: None (occurrence: None)
  Receive Date: 20120302
  Receipt Date: 20120223
  Transmission Date: 20120608
  Serious: Yes (Hospitalization)
  Sender: FDA-Public Use
  Company Number: US-BAYER-2011-107625

PATIENT
  Age: 27 Year
  Sex: Female
  Weight: 106.58 kg

DRUGS (1)
  1. YASMIN [Suspect]
     Dosage: UNK
     Dates: start: 20010101, end: 20060101

REACTIONS (7)
  - HYPOAESTHESIA [None]
  - EMOTIONAL DISTRESS [None]
  - PAIN [None]
  - TRANSIENT ISCHAEMIC ATTACK [None]
  - ASTHENIA [None]
  - HEMIPARESIS [None]
  - INJURY [None]
